FAERS Safety Report 5878878-4 (Version None)
Quarter: 2008Q3

REPORT INFORMATION
  Report Type: 
  Country: None (occurrence: None)
  Receive Date: 20080910
  Receipt Date: 20080910
  Transmission Date: 20090109
  Serious: Yes (Hospitalization)
  Sender: FDA-Public Use
  Company Number: None

PATIENT
  Age: 59 Year
  Sex: Male
  Weight: 114.31 kg

DRUGS (2)
  1. MOXIFLOXACIN HCL [Suspect]
     Indication: CHRONIC OBSTRUCTIVE PULMONARY DISEASE
     Dosage: 400 MG EVERY DAY PO
     Route: 048
     Dates: start: 20080811, end: 20080812
  2. MOXIFLOXACIN HCL [Suspect]
     Indication: INCREASED UPPER AIRWAY SECRETION
     Dosage: 400 MG EVERY DAY PO
     Route: 048
     Dates: start: 20080811, end: 20080812

REACTIONS (5)
  - ANAPHYLACTIC SHOCK [None]
  - DYSPNOEA [None]
  - EYE SWELLING [None]
  - SPEECH DISORDER [None]
  - SYNCOPE [None]
